FAERS Safety Report 6843542-1 (Version None)
Quarter: 2010Q3

REPORT INFORMATION
  Report Type: 
  Country: None (occurrence: None)
  Receive Date: 20100715
  Receipt Date: 20100706
  Transmission Date: 20110219
  Serious: Yes (Hospitalization)
  Sender: FDA-Public Use
  Company Number: AT-ASTRAZENECA-2010SE31898

PATIENT
  Age: 78 Year
  Sex: Female

DRUGS (15)
  1. LISINOPRIL [Suspect]
     Indication: HYPERTENSION
     Route: 048
  2. LISINOPRIL [Interacting]
     Indication: CARDIAC FAILURE
     Route: 048
  3. LISINOPRIL AND HYDROCHLOROTHIAZIDE [Interacting]
     Indication: HYPERTENSION
     Route: 048
  4. LISINOPRIL AND HYDROCHLOROTHIAZIDE [Interacting]
     Indication: CARDIAC FAILURE
     Route: 048
  5. IBUPROFEN [Interacting]
     Indication: PAIN IN EXTREMITY
     Dosage: ALMOST EVERY DAY
  6. SPIRONOLACTONE [Interacting]
     Indication: CARDIAC FAILURE
     Dosage: 25 MG
  7. SPIRONOLACTONE [Interacting]
     Indication: HYPERTENSION
     Dosage: 25 MG
  8. ACETYLSALICYLIC ACID [Concomitant]
     Indication: CARDIAC FAILURE
     Dosage: 100 MG
  9. OMEPRAZOLE [Concomitant]
     Dosage: 20 MG
  10. AMLODIPINE [Concomitant]
     Indication: HYPERTENSION
     Dosage: 10 MG
  11. AMLODIPINE [Concomitant]
     Indication: CARDIAC FAILURE
     Dosage: 10 MG
  12. ATENOLOL [Concomitant]
     Indication: HYPERTENSION
     Dosage: 50 MG
  13. ATENOLOL [Concomitant]
     Indication: CARDIAC FAILURE
     Dosage: 50 MG
  14. METFORMIN HCL [Concomitant]
     Indication: DIABETES MELLITUS
     Dosage: 1,000 MG
  15. GLICLAZID MR [Concomitant]
     Indication: DIABETES MELLITUS
     Dosage: 30 MG

REACTIONS (4)
  - BRADYCARDIA [None]
  - DRUG INTERACTION [None]
  - HYPERKALAEMIA [None]
  - RENAL FAILURE [None]
